FAERS Safety Report 20370347 (Version 2)
Quarter: 2022Q1

REPORT INFORMATION
  Report Type: Spontaneous
  Country: US (occurrence: US)
  Receive Date: 20220124
  Receipt Date: 20220131
  Transmission Date: 20220424
  Serious: Yes (Other)
  Sender: FDA-Public Use
  Company Number: US-JNJFOC-20220137390

PATIENT
  Age: 52 Year
  Sex: Female
  Weight: 57.6 kg

DRUGS (1)
  1. TOPIRAMATE [Suspect]
     Active Substance: TOPIRAMATE
     Indication: Bipolar I disorder
     Route: 048

REACTIONS (10)
  - Paralysis [Unknown]
  - Hypothyroidism [Unknown]
  - Syncope [Unknown]
  - Diarrhoea [Unknown]
  - Amnesia [Unknown]
  - Agitation [Unknown]
  - Insomnia [Unknown]
  - Mania [Unknown]
  - Off label use [Unknown]
  - Product use in unapproved indication [Unknown]

NARRATIVE: CASE EVENT DATE: 20060101
